FAERS Safety Report 7962135-6 (Version None)
Quarter: 2011Q4

REPORT INFORMATION
  Report Type: 
  Country: None (occurrence: None)
  Receive Date: 20111207
  Receipt Date: 20111128
  Transmission Date: 20120403
  Serious: Yes (Hospitalization)
  Sender: FDA-Public Use
  Company Number: US-BAXTER-2011BH037275

PATIENT
  Age: 46 Year
  Sex: Male

DRUGS (1)
  1. ACETIC ACID [Suspect]
     Indication: RESPIRATORY THERAPY
     Route: 055
     Dates: start: 20110312, end: 20110312

REACTIONS (4)
  - DRUG LABEL CONFUSION [None]
  - MEDICATION ERROR [None]
  - DEVICE CONNECTION ISSUE [None]
  - WRONG DRUG ADMINISTERED [None]
